FAERS Safety Report 4448100-4 (Version None)
Quarter: 2004Q3

REPORT INFORMATION
  Report Type: 
  Country: None (occurrence: None)
  Receive Date: 20040812
  Receipt Date: 20040628
  Transmission Date: 20050211
  Serious: No
  Sender: FDA-Public Use
  Company Number: USA040671128

PATIENT
  Age: 60 Year
  Sex: Male
  Weight: 82 kg

DRUGS (1)
  1. CIALIS [Suspect]
     Indication: ERECTILE DYSFUNCTION
     Dosage: 20 MG DAY
     Dates: start: 20040623, end: 20040626

REACTIONS (6)
  - HEADACHE [None]
  - INSOMNIA [None]
  - LACRIMATION INCREASED [None]
  - MUSCLE CRAMP [None]
  - SINUS CONGESTION [None]
  - VISION BLURRED [None]
